FAERS Safety Report 5138605-5 (Version None)
Quarter: 2006Q4

REPORT INFORMATION
  Report Type: 
  Country: None (occurrence: None)
  Receive Date: 20061030
  Receipt Date: 20061026
  Transmission Date: 20070319
  Serious: Yes (Other)
  Sender: FDA-Public Use
  Company Number: 200618662US

PATIENT
  Age: 61 Year
  Sex: Female

DRUGS (8)
  1. WELLBUTRIN [Suspect]
     Indication: DRUG USE FOR UNKNOWN INDICATION
     Dosage: 100MG PER DAY
     Route: 048
  2. ALLEGRA-D 12 HOUR [Suspect]
     Indication: DRUG USE FOR UNKNOWN INDICATION
     Dosage: 100MG PER DAY
     Route: 048
  3. CLARINEX [Concomitant]
     Indication: DRUG USE FOR UNKNOWN INDICATION
     Dosage: 5MG PER DAY
     Route: 048
     Dates: start: 20061007
  4. OMEPRAZOLE [Concomitant]
  5. ANASTROZOLE [Concomitant]
  6. SIMVASTATIN [Concomitant]
  7. ZOLPIDEM TARTRATE [Concomitant]
  8. CLONAPAM [Concomitant]

REACTIONS (6)
  - DRUG INTERACTION [None]
  - DRY MOUTH [None]
  - DYSKINESIA [None]
  - GAIT DISTURBANCE [None]
  - LIP DRY [None]
  - TARDIVE DYSKINESIA [None]
